FAERS Safety Report 19909337 (Version 1)
Quarter: 2021Q4

REPORT INFORMATION
  Report Type: Spontaneous
  Country: PL (occurrence: PL)
  Receive Date: 20211001
  Receipt Date: 20211001
  Transmission Date: 20220303
  Serious: Yes (Hospitalization, Disabling, Other)
  Sender: FDA-Public Use
  Company Number: PL-ABBVIE-21K-129-4013774-00

PATIENT
  Age: 62 Year
  Sex: Female

DRUGS (6)
  1. VALPROIC ACID [Interacting]
     Active Substance: VALPROIC ACID
     Indication: Epilepsy
     Route: 065
  2. VALPROIC ACID [Interacting]
     Active Substance: VALPROIC ACID
     Route: 065
  3. LAMOTRIGINE [Interacting]
     Active Substance: LAMOTRIGINE
     Indication: Epilepsy
     Route: 065
     Dates: end: 2017
  4. LAMOTRIGINE [Interacting]
     Active Substance: LAMOTRIGINE
     Route: 065
     Dates: start: 2017
  5. LACOSAMIDE [Suspect]
     Active Substance: LACOSAMIDE
     Indication: Epilepsy
     Route: 065
     Dates: start: 2016
  6. PRIDINOL [Suspect]
     Active Substance: PRIDINOL
     Indication: Epilepsy
     Route: 065
     Dates: start: 2020

REACTIONS (18)
  - Disability [Recovering/Resolving]
  - Cerebellar syndrome [Recovering/Resolving]
  - Intention tremor [Recovering/Resolving]
  - Neurological symptom [Recovering/Resolving]
  - Cognitive disorder [Recovering/Resolving]
  - Balance disorder [Recovering/Resolving]
  - Loss of personal independence in daily activities [Recovering/Resolving]
  - Head titubation [Recovering/Resolving]
  - Drug interaction [Unknown]
  - Dysmetria [Recovering/Resolving]
  - Cerebral atrophy [Recovering/Resolving]
  - Tremor [Recovering/Resolving]
  - Resting tremor [Recovering/Resolving]
  - Therapeutic product effect incomplete [Unknown]
  - Musculoskeletal disorder [Recovering/Resolving]
  - Gait disturbance [Recovered/Resolved]
  - Arteriosclerosis [Recovering/Resolving]
  - Nystagmus [Recovering/Resolving]
